FAERS Safety Report 8762339 (Version 1)
Quarter: 2012Q4

REPORT INFORMATION
  Report Type: 
  Country: US (occurrence: US)
  Receive Date: 20120830
  Receipt Date: 20120830
  Transmission Date: 20130627
  Serious: No
  Sender: FDA-Public Use
  Company Number: US-PFIZER INC-2012210756

PATIENT
  Age: 68 Year
  Sex: Male
  Weight: 128 kg

DRUGS (3)
  1. CELEBREX [Suspect]
     Indication: ARTHRALGIA
     Dosage: 100 mg, 2x/day
     Route: 048
     Dates: start: 201006, end: 2010
  2. CELEBREX [Suspect]
     Dosage: 200 mg, 2x/day
     Route: 048
     Dates: start: 2010, end: 2010
  3. CRESTOR [Concomitant]
     Indication: BLOOD CHOLESTEROL INCREASED
     Dosage: 10 mg, UNK

REACTIONS (1)
  - Drug ineffective [Unknown]
